FAERS Safety Report 17755205 (Version 1)
Quarter: 2020Q2

REPORT INFORMATION
  Report Type: Spontaneous
  Country: CA (occurrence: CA)
  Receive Date: 20200507
  Receipt Date: 20200507
  Transmission Date: 20200714
  Serious: Yes (Other)
  Sender: FDA-Public Use
  Company Number: CA-SAMSUNG BIOEPIS-SB-2020-15093

PATIENT
  Age: 34 Year
  Sex: Male

DRUGS (5)
  1. MEZAVANT [Concomitant]
     Active Substance: MESALAMINE
     Indication: PRODUCT USED FOR UNKNOWN INDICATION
     Dosage: DELAYED AND EXTENDED RELEASE TABLET
     Route: 048
  2. HYDROCORTISONE. [Concomitant]
     Active Substance: HYDROCORTISONE
     Indication: PRODUCT USED FOR UNKNOWN INDICATION
     Dosage: UNKNOWN
     Route: 065
  3. AZATHIOPRINE. [Concomitant]
     Active Substance: AZATHIOPRINE
     Indication: PRODUCT USED FOR UNKNOWN INDICATION
     Dosage: UNKNOWN
     Route: 065
  4. INFLIXIMAB [Suspect]
     Active Substance: INFLIXIMAB
     Indication: COLITIS ULCERATIVE
     Route: 042
  5. HYDROCORTISONE. [Concomitant]
     Active Substance: HYDROCORTISONE
     Dosage: UNKNOWN
     Route: 054

REACTIONS (9)
  - Condition aggravated [Recovered/Resolved]
  - Inguinal hernia [Recovered/Resolved]
  - Malaise [Recovered/Resolved]
  - Eye pain [Recovered/Resolved]
  - Therapeutic product effect incomplete [Recovered/Resolved]
  - Hypersomnia [Recovered/Resolved]
  - Vision blurred [Recovered/Resolved]
  - Inappropriate schedule of product administration [Recovered/Resolved]
  - Iritis [Recovered/Resolved]
